FAERS Safety Report 21465882 (Version 1)
Quarter: 2022Q4

REPORT INFORMATION
  Report Type: Spontaneous
  Country: US (occurrence: None)
  Receive Date: 20221015
  Receipt Date: 20221015
  Transmission Date: 20230112
  Serious: No
  Sender: FDA-Public Use
  Company Number: None

PATIENT
  Sex: Male

DRUGS (6)
  1. ABIRATERONE ACETATE [Suspect]
     Active Substance: ABIRATERONE ACETATE
     Route: 048
  2. PREDNISONE [Suspect]
     Active Substance: PREDNISONE
     Route: 048
  3. aspirin 81 mg tab [Concomitant]
  4. atenolol 25 mg tab [Concomitant]
  5. ELIGARD 22.5 mg injection [Concomitant]
  6. prevagen 10 mg cap [Concomitant]

REACTIONS (1)
  - Therapeutic product effect decreased [None]
